FAERS Safety Report 6688758-2 (Version None)
Quarter: 2010Q2

REPORT INFORMATION
  Report Type: 
  Country: None (occurrence: None)
  Receive Date: 20100420
  Receipt Date: 20100409
  Transmission Date: 20101027
  Serious: Yes (Other)
  Sender: FDA-Public Use
  Company Number: B0648256A

PATIENT
  Sex: Female
  Weight: 55 kg

DRUGS (1)
  1. SERETIDE [Suspect]
     Indication: ASTHMA
     Route: 065
     Dates: start: 20100301, end: 20100325

REACTIONS (2)
  - HAEMATOMA [None]
  - INFLUENZA LIKE ILLNESS [None]
